FAERS Safety Report 24133620 (Version 6)
Quarter: 2025Q3

REPORT INFORMATION
  Report Type: Spontaneous
  Country: EU (occurrence: EU)
  Receive Date: 20240724
  Receipt Date: 20250813
  Transmission Date: 20251021
  Serious: Yes (Hospitalization, Other)
  Sender: MYLAN
  Company Number: EU-JNJFOC-20240720833

PATIENT
  Age: 72 Year
  Sex: Male
  Weight: 70.23 kg

DRUGS (64)
  1. LOPERAMIDE [Suspect]
     Active Substance: LOPERAMIDE
     Indication: HER2 positive colorectal cancer
     Dosage: 4 MILLIGRAM, TID (4 MG THREE TIMES DAILY) (DAYS 1 TO 14)
     Route: 065
     Dates: start: 20240523, end: 20240605
  2. LOPERAMIDE [Suspect]
     Active Substance: LOPERAMIDE
     Dosage: 4 MILLIGRAM, TID (4 MG THREE TIMES DAILY) (DAYS 1 TO 14)
     Dates: start: 20240523, end: 20240605
  3. LOPERAMIDE [Suspect]
     Active Substance: LOPERAMIDE
     Dosage: 4 MILLIGRAM, TID (4 MG THREE TIMES DAILY) (DAYS 1 TO 14)
     Dates: start: 20240523, end: 20240605
  4. LOPERAMIDE [Suspect]
     Active Substance: LOPERAMIDE
     Dosage: 4 MILLIGRAM, TID (4 MG THREE TIMES DAILY) (DAYS 1 TO 14)
     Route: 065
     Dates: start: 20240523, end: 20240605
  5. LOPERAMIDE [Suspect]
     Active Substance: LOPERAMIDE
     Dosage: 4 MILLIGRAM, BID (4 MG TWICE DAILY) (DAY 15 THROUGH DAY 42)
     Route: 065
     Dates: start: 20240606, end: 20240623
  6. LOPERAMIDE [Suspect]
     Active Substance: LOPERAMIDE
     Dosage: 4 MILLIGRAM, BID (4 MG TWICE DAILY) (DAY 15 THROUGH DAY 42)
     Dates: start: 20240606, end: 20240623
  7. LOPERAMIDE [Suspect]
     Active Substance: LOPERAMIDE
     Dosage: 4 MILLIGRAM, BID (4 MG TWICE DAILY) (DAY 15 THROUGH DAY 42)
     Dates: start: 20240606, end: 20240623
  8. LOPERAMIDE [Suspect]
     Active Substance: LOPERAMIDE
     Dosage: 4 MILLIGRAM, BID (4 MG TWICE DAILY) (DAY 15 THROUGH DAY 42)
     Route: 065
     Dates: start: 20240606, end: 20240623
  9. TUCATINIB [Suspect]
     Active Substance: TUCATINIB
     Indication: HER2 positive colorectal cancer
     Dosage: 300 MILLIGRAM, BID (300 MG, 2X/DAY (BID))
     Route: 048
     Dates: start: 20240523, end: 20240623
  10. TUCATINIB [Suspect]
     Active Substance: TUCATINIB
     Dosage: 300 MILLIGRAM, BID (300 MG, 2X/DAY (BID))
     Dates: start: 20240523, end: 20240623
  11. TUCATINIB [Suspect]
     Active Substance: TUCATINIB
     Dosage: 300 MILLIGRAM, BID (300 MG, 2X/DAY (BID))
     Dates: start: 20240523, end: 20240623
  12. TUCATINIB [Suspect]
     Active Substance: TUCATINIB
     Dosage: 300 MILLIGRAM, BID (300 MG, 2X/DAY (BID))
     Route: 048
     Dates: start: 20240523, end: 20240623
  13. TUCATINIB [Suspect]
     Active Substance: TUCATINIB
     Route: 065
  14. TUCATINIB [Suspect]
     Active Substance: TUCATINIB
  15. TUCATINIB [Suspect]
     Active Substance: TUCATINIB
  16. TUCATINIB [Suspect]
     Active Substance: TUCATINIB
     Route: 065
  17. TUCATINIB [Suspect]
     Active Substance: TUCATINIB
     Indication: HER2 positive colorectal cancer
     Dosage: 8 MG/KG Q3W SINGLE LOADING DOSE 8 MG/KG IV ON C1 D1
  18. TUCATINIB [Suspect]
     Active Substance: TUCATINIB
     Dosage: 8 MG/KG Q3W SINGLE LOADING DOSE 8 MG/KG IV ON C1 D1
     Route: 042
  19. TUCATINIB [Suspect]
     Active Substance: TUCATINIB
     Dosage: 8 MG/KG Q3W SINGLE LOADING DOSE 8 MG/KG IV ON C1 D1
     Route: 042
  20. TUCATINIB [Suspect]
     Active Substance: TUCATINIB
     Dosage: 8 MG/KG Q3W SINGLE LOADING DOSE 8 MG/KG IV ON C1 D1
  21. OXALIPLATIN [Suspect]
     Active Substance: OXALIPLATIN
     Indication: HER2 positive colorectal cancer
     Dosage: 85 MG/SQ. METER, Q2W (85 MG/M2 EVERY 2 WEEKS ON DAYS 1, 15 AND 29 OF EACH 6-WEEK (42-DAY) CYCLE)
     Dates: start: 20240523, end: 20240618
  22. OXALIPLATIN [Suspect]
     Active Substance: OXALIPLATIN
     Dosage: 85 MG/SQ. METER, Q2W (85 MG/M2 EVERY 2 WEEKS ON DAYS 1, 15 AND 29 OF EACH 6-WEEK (42-DAY) CYCLE)
     Route: 042
     Dates: start: 20240523, end: 20240618
  23. OXALIPLATIN [Suspect]
     Active Substance: OXALIPLATIN
     Dosage: 85 MG/SQ. METER, Q2W (85 MG/M2 EVERY 2 WEEKS ON DAYS 1, 15 AND 29 OF EACH 6-WEEK (42-DAY) CYCLE)
     Route: 042
     Dates: start: 20240523, end: 20240618
  24. OXALIPLATIN [Suspect]
     Active Substance: OXALIPLATIN
     Dosage: 85 MG/SQ. METER, Q2W (85 MG/M2 EVERY 2 WEEKS ON DAYS 1, 15 AND 29 OF EACH 6-WEEK (42-DAY) CYCLE)
     Dates: start: 20240523, end: 20240618
  25. OXALIPLATIN [Suspect]
     Active Substance: OXALIPLATIN
     Indication: HER2 positive colorectal cancer
  26. OXALIPLATIN [Suspect]
     Active Substance: OXALIPLATIN
  27. OXALIPLATIN [Suspect]
     Active Substance: OXALIPLATIN
     Route: 065
  28. OXALIPLATIN [Suspect]
     Active Substance: OXALIPLATIN
     Route: 065
  29. OXALIPLATIN [Suspect]
     Active Substance: OXALIPLATIN
  30. OXALIPLATIN [Suspect]
     Active Substance: OXALIPLATIN
  31. OXALIPLATIN [Suspect]
     Active Substance: OXALIPLATIN
     Route: 065
  32. OXALIPLATIN [Suspect]
     Active Substance: OXALIPLATIN
     Route: 065
  33. OXALIPLATIN [Suspect]
     Active Substance: OXALIPLATIN
  34. OXALIPLATIN [Suspect]
     Active Substance: OXALIPLATIN
     Route: 065
  35. OXALIPLATIN [Suspect]
     Active Substance: OXALIPLATIN
  36. OXALIPLATIN [Suspect]
     Active Substance: OXALIPLATIN
     Route: 065
  37. TRASTUZUMAB [Suspect]
     Active Substance: TRASTUZUMAB
     Indication: HER2 positive colorectal cancer
     Dosage: 8 MG/KG, Q3W (8 MG/KG ON DAY 1 OF EVERY 3 WEEKS (Q3W) (SINGLE LOADING DOSE 8 MG/KG IV ON C1 D1))
     Dates: start: 20240523, end: 20240523
  38. TRASTUZUMAB [Suspect]
     Active Substance: TRASTUZUMAB
     Dosage: 8 MG/KG, Q3W (8 MG/KG ON DAY 1 OF EVERY 3 WEEKS (Q3W) (SINGLE LOADING DOSE 8 MG/KG IV ON C1 D1))
     Route: 042
     Dates: start: 20240523, end: 20240523
  39. TRASTUZUMAB [Suspect]
     Active Substance: TRASTUZUMAB
     Dosage: 8 MG/KG, Q3W (8 MG/KG ON DAY 1 OF EVERY 3 WEEKS (Q3W) (SINGLE LOADING DOSE 8 MG/KG IV ON C1 D1))
     Route: 042
     Dates: start: 20240523, end: 20240523
  40. TRASTUZUMAB [Suspect]
     Active Substance: TRASTUZUMAB
     Dosage: 8 MG/KG, Q3W (8 MG/KG ON DAY 1 OF EVERY 3 WEEKS (Q3W) (SINGLE LOADING DOSE 8 MG/KG IV ON C1 D1))
     Dates: start: 20240523, end: 20240523
  41. LEVOLEUCOVORIN CALCIUM [Suspect]
     Active Substance: LEVOLEUCOVORIN CALCIUM
     Indication: HER2 positive colorectal cancer
     Dosage: 372 MILLIGRAM, Q2W, 372 MG, EVERY 2 WEEKS ON DAYS 1, 15 AND 29 OF EACH 6-WEEK CYCLE
     Dates: start: 20240523, end: 20240624
  42. LEVOLEUCOVORIN CALCIUM [Suspect]
     Active Substance: LEVOLEUCOVORIN CALCIUM
     Dosage: 372 MILLIGRAM, Q2W, 372 MG, EVERY 2 WEEKS ON DAYS 1, 15 AND 29 OF EACH 6-WEEK CYCLE
     Route: 042
     Dates: start: 20240523, end: 20240624
  43. LEVOLEUCOVORIN CALCIUM [Suspect]
     Active Substance: LEVOLEUCOVORIN CALCIUM
     Dosage: 372 MILLIGRAM, Q2W, 372 MG, EVERY 2 WEEKS ON DAYS 1, 15 AND 29 OF EACH 6-WEEK CYCLE
     Route: 042
     Dates: start: 20240523, end: 20240624
  44. LEVOLEUCOVORIN CALCIUM [Suspect]
     Active Substance: LEVOLEUCOVORIN CALCIUM
     Dosage: 372 MILLIGRAM, Q2W, 372 MG, EVERY 2 WEEKS ON DAYS 1, 15 AND 29 OF EACH 6-WEEK CYCLE
     Dates: start: 20240523, end: 20240624
  45. LEVOLEUCOVORIN [Suspect]
     Active Substance: LEVOLEUCOVORIN
     Indication: HER2 positive colorectal cancer
     Dosage: 200 MILLIGRAM/SQ. METER, Q2W (200 MG/M2 EVERY 2 WEEKS ON DAYS 1, 15 AND 29 OF EACH 6-WEEK CYCLE)
     Dates: start: 20240523, end: 20240618
  46. LEVOLEUCOVORIN [Suspect]
     Active Substance: LEVOLEUCOVORIN
     Dosage: 200 MILLIGRAM/SQ. METER, Q2W (200 MG/M2 EVERY 2 WEEKS ON DAYS 1, 15 AND 29 OF EACH 6-WEEK CYCLE)
     Route: 042
     Dates: start: 20240523, end: 20240618
  47. LEVOLEUCOVORIN [Suspect]
     Active Substance: LEVOLEUCOVORIN
     Dosage: 200 MILLIGRAM/SQ. METER, Q2W (200 MG/M2 EVERY 2 WEEKS ON DAYS 1, 15 AND 29 OF EACH 6-WEEK CYCLE)
     Route: 042
     Dates: start: 20240523, end: 20240618
  48. LEVOLEUCOVORIN [Suspect]
     Active Substance: LEVOLEUCOVORIN
     Dosage: 200 MILLIGRAM/SQ. METER, Q2W (200 MG/M2 EVERY 2 WEEKS ON DAYS 1, 15 AND 29 OF EACH 6-WEEK CYCLE)
     Dates: start: 20240523, end: 20240618
  49. FLUOROURACIL [Suspect]
     Active Substance: FLUOROURACIL
     Indication: HER2 positive colorectal cancer
     Dosage: 400 MILLIGRAM/SQ. METER, Q2W
     Route: 042
     Dates: start: 20240523, end: 20240618
  50. FLUOROURACIL [Suspect]
     Active Substance: FLUOROURACIL
     Dosage: 400 MILLIGRAM/SQ. METER, Q2W
     Dates: start: 20240523, end: 20240618
  51. FLUOROURACIL [Suspect]
     Active Substance: FLUOROURACIL
     Dosage: 400 MILLIGRAM/SQ. METER, Q2W
     Dates: start: 20240523, end: 20240618
  52. FLUOROURACIL [Suspect]
     Active Substance: FLUOROURACIL
     Dosage: 400 MILLIGRAM/SQ. METER, Q2W
     Route: 042
     Dates: start: 20240523, end: 20240618
  53. FLUOROURACIL [Suspect]
     Active Substance: FLUOROURACIL
     Dosage: 2400 MG/M2 (IV OVER 46-48 HOURS) EVERY 2 WEEKS ON DAYS 1, 15 AND 29 OF EACH 6-WEEK CYCLE
     Route: 042
  54. FLUOROURACIL [Suspect]
     Active Substance: FLUOROURACIL
     Dosage: 2400 MG/M2 (IV OVER 46-48 HOURS) EVERY 2 WEEKS ON DAYS 1, 15 AND 29 OF EACH 6-WEEK CYCLE
  55. FLUOROURACIL [Suspect]
     Active Substance: FLUOROURACIL
     Dosage: 2400 MG/M2 (IV OVER 46-48 HOURS) EVERY 2 WEEKS ON DAYS 1, 15 AND 29 OF EACH 6-WEEK CYCLE
  56. FLUOROURACIL [Suspect]
     Active Substance: FLUOROURACIL
     Dosage: 2400 MG/M2 (IV OVER 46-48 HOURS) EVERY 2 WEEKS ON DAYS 1, 15 AND 29 OF EACH 6-WEEK CYCLE
     Route: 042
  57. METFORMIN [Concomitant]
     Active Substance: METFORMIN HYDROCHLORIDE
     Indication: Product used for unknown indication
     Dates: start: 2014, end: 20240624
  58. METFORMIN [Concomitant]
     Active Substance: METFORMIN HYDROCHLORIDE
     Route: 065
     Dates: start: 2014, end: 20240624
  59. METFORMIN [Concomitant]
     Active Substance: METFORMIN HYDROCHLORIDE
     Route: 065
     Dates: start: 2014, end: 20240624
  60. METFORMIN [Concomitant]
     Active Substance: METFORMIN HYDROCHLORIDE
     Dates: start: 2014, end: 20240624
  61. EMPAGLIFLOZIN [Concomitant]
     Active Substance: EMPAGLIFLOZIN
     Indication: Product used for unknown indication
     Dates: start: 2014, end: 20240624
  62. EMPAGLIFLOZIN [Concomitant]
     Active Substance: EMPAGLIFLOZIN
     Route: 065
     Dates: start: 2014, end: 20240624
  63. EMPAGLIFLOZIN [Concomitant]
     Active Substance: EMPAGLIFLOZIN
     Route: 065
     Dates: start: 2014, end: 20240624
  64. EMPAGLIFLOZIN [Concomitant]
     Active Substance: EMPAGLIFLOZIN
     Dates: start: 2014, end: 20240624

REACTIONS (4)
  - Acute kidney injury [Recovered/Resolved]
  - Blood creatinine increased [Unknown]
  - Off label use [Unknown]
  - Nausea [Not Recovered/Not Resolved]

NARRATIVE: CASE EVENT DATE: 20240523
